FAERS Safety Report 21252539 (Version 1)
Quarter: 2022Q3

REPORT INFORMATION
  Report Type: Report from Study
  Country: US (occurrence: US)
  Receive Date: 20220825
  Receipt Date: 20220825
  Transmission Date: 20221027
  Serious: Yes (Other)
  Sender: FDA-Public Use
  Company Number: US-BIOGEN-2022BI01149987

PATIENT
  Sex: Female

DRUGS (1)
  1. VUMERITY [Suspect]
     Active Substance: DIROXIMEL FUMARATE
     Indication: Multiple sclerosis
     Route: 050
     Dates: end: 20200731

REACTIONS (5)
  - Cerebrovascular accident [Unknown]
  - Blood cholesterol increased [Unknown]
  - Cardiac disorder [Unknown]
  - Microangiopathy [Unknown]
  - Coronary artery disease [Unknown]
